FAERS Safety Report 9797846 (Version 1)
Quarter: 2014Q1

REPORT INFORMATION
  Report Type: Spontaneous
  Country: US (occurrence: US)
  Receive Date: 20140106
  Receipt Date: 20140106
  Transmission Date: 20141002
  Serious: Yes (Other)
  Sender: FDA-Public Use
  Company Number: US-BAYER-2013-159705

PATIENT
  Age: 85 Year
  Sex: Male
  Weight: 74.8 kg

DRUGS (3)
  1. CIPRO [Suspect]
     Indication: GASTROINTESTINAL BACTERIAL INFECTION
     Dosage: UNK
     Route: 048
     Dates: start: 201012, end: 201012
  2. ZANAFLEX [Suspect]
     Indication: AMYOTROPHIC LATERAL SCLEROSIS
     Dosage: UNK
     Route: 048
     Dates: end: 2012
  3. ZANAFLEX [Suspect]
     Indication: AMYOTROPHIC LATERAL SCLEROSIS
     Dosage: UNK
     Dates: start: 2012

REACTIONS (2)
  - Unresponsive to stimuli [Recovered/Resolved]
  - Allergic respiratory symptom [Not Recovered/Not Resolved]
